FAERS Safety Report 6958750-9 (Version None)
Quarter: 2010Q3

REPORT INFORMATION
  Report Type: 
  Country: None (occurrence: None)
  Receive Date: 20100831
  Receipt Date: 20100628
  Transmission Date: 20110219
  Serious: Yes (Other)
  Sender: FDA-Public Use
  Company Number: PHHY2010US42466

PATIENT
  Sex: Female

DRUGS (10)
  1. TEKTURNA [Suspect]
     Dosage: 150 MG, BID
  2. CLONAZEPAM [Concomitant]
  3. CLONIDINE [Concomitant]
  4. LEXAPRO [Concomitant]
  5. HYDROXYUREA [Concomitant]
  6. ASPIRIN [Concomitant]
  7. VITAMIN D3 [Concomitant]
  8. CALCIUM [Concomitant]
  9. ASCORBIC ACID [Concomitant]
  10. MULTI-VITAMINS [Concomitant]

REACTIONS (2)
  - PSYCHOTIC DISORDER [None]
  - THROMBOCYTOSIS [None]
